FAERS Safety Report 8585634 (Version 2)
Quarter: 2013Q2

REPORT INFORMATION
  Report Type: Spontaneous
  Country: US (occurrence: US)
  Receive Date: 20120530
  Receipt Date: 20130530
  Transmission Date: 20140414
  Serious: Yes (Hospitalization)
  Sender: FDA-Public Use
  Company Number: US-GLAXOSMITHKLINE-A0945200A

PATIENT
  Age: 53 Year
  Sex: Female
  Weight: 73 kg

DRUGS (14)
  1. FLOLAN [Suspect]
     Indication: PULMONARY ARTERIAL HYPERTENSION
     Dosage: 46NGKM CONTINUOUS
     Route: 065
     Dates: start: 20060612
  2. FENTANYL [Concomitant]
  3. POTASSIUM [Concomitant]
     Dosage: 50MEQ PER DAY
  4. ALENDRONATE [Concomitant]
     Dosage: 70MG WEEKLY
  5. FERROUS SULFATE [Concomitant]
     Dosage: 325MG PER DAY
  6. CALCIUM [Concomitant]
     Dosage: 600MG PER DAY
  7. VITAMIN D [Concomitant]
     Dosage: 1000UNIT PER DAY
  8. WARFARIN [Concomitant]
  9. LASIX [Concomitant]
     Dosage: 40MG TWICE PER DAY
  10. XANAX [Concomitant]
     Dosage: 1MG FOUR TIMES PER DAY
  11. SYNTHROID [Concomitant]
     Dosage: 75MCG PER DAY
  12. ATROPINE + DIPHENOXYLATE [Concomitant]
  13. PERCOCET [Concomitant]
  14. TRACLEER [Concomitant]

REACTIONS (10)
  - Pain in extremity [Not Recovered/Not Resolved]
  - Infusion site erythema [Unknown]
  - Infusion site swelling [Unknown]
  - Erythema [Unknown]
  - Feeling hot [Unknown]
  - Hyperhidrosis [Unknown]
  - Back pain [Unknown]
  - Contusion [Unknown]
  - Rash erythematous [Not Recovered/Not Resolved]
  - Fluid overload [Unknown]
